FAERS Safety Report 8245537-2 (Version None)
Quarter: 2012Q1

REPORT INFORMATION
  Report Type: 
  Country: None (occurrence: None)
  Receive Date: 20120329
  Receipt Date: 20120323
  Transmission Date: 20120608
  Serious: Yes (Hospitalization)
  Sender: FDA-Public Use
  Company Number: AT-TEVA-330216USA

PATIENT
  Sex: Male
  Weight: 83 kg

DRUGS (6)
  1. TREANDA [Suspect]
     Dosage: 6.51 MILLIGRAM;
     Route: 042
     Dates: start: 20110715
  2. DIOSMIN [Concomitant]
  3. ASPIRIN [Concomitant]
  4. ALLOPURINOL [Concomitant]
  5. RITUXIMAB [Suspect]
     Dosage: 27.125 MILLIGRAM;
     Route: 042
     Dates: start: 20110714
  6. PRAVASTATIN [Concomitant]

REACTIONS (1)
  - GENERAL PHYSICAL HEALTH DETERIORATION [None]
